FAERS Safety Report 8393912-8 (Version None)
Quarter: 2012Q2

REPORT INFORMATION
  Report Type: 
  Country: None (occurrence: None)
  Receive Date: 20120517
  Receipt Date: 20120501
  Transmission Date: 20120825
  Serious: Yes (Congenital Anomaly)
  Sender: FDA-Public Use
  Company Number: B0800945A

PATIENT
  Sex: 0

DRUGS (2)
  1. TOPIRAMATE [Suspect]
     Indication: EPILEPSY
     Dosage: 200 MG/ TRANSPLACENTARY
     Route: 064
  2. LAMOTRIGINE [Suspect]
     Indication: EPILEPSY
     Dosage: 100 MG/ TRANSPLACENTARY
     Route: 064

REACTIONS (2)
  - CONGENITAL INGUINAL HERNIA [None]
  - MATERNAL DRUGS AFFECTING FOETUS [None]
